FAERS Safety Report 6247531-X (Version None)
Quarter: 2009Q2

REPORT INFORMATION
  Report Type: 
  Country: None (occurrence: None)
  Receive Date: 20090626
  Receipt Date: 20090624
  Transmission Date: 20091009
  Serious: Yes (Death)
  Sender: FDA-Public Use
  Company Number: DE-JNJFOC-20090607992

PATIENT
  Age: 88 Year
  Sex: Male

DRUGS (13)
  1. RISPERDAL [Suspect]
     Indication: DRUG USE FOR UNKNOWN INDICATION
     Route: 048
  2. NOVALGIN [Suspect]
     Route: 048
  3. NOVALGIN [Suspect]
     Indication: DRUG USE FOR UNKNOWN INDICATION
     Route: 048
  4. DURAGESIC-100 [Suspect]
     Indication: DRUG USE FOR UNKNOWN INDICATION
     Route: 062
  5. TRAMADOL HCL [Suspect]
     Indication: DRUG USE FOR UNKNOWN INDICATION
  6. THEOPHYLLINE [Concomitant]
     Route: 048
  7. METOPROLOL SUCCINATE [Concomitant]
     Route: 048
  8. TORSEMIDE [Concomitant]
     Route: 048
  9. CARMEN [Concomitant]
     Route: 048
  10. UROXATRAL [Concomitant]
     Route: 048
  11. RAMIPRIL [Concomitant]
     Route: 048
  12. IBUPROFEN [Concomitant]
     Route: 048
  13. CEFTRIAXONE [Concomitant]

REACTIONS (3)
  - CONFUSIONAL STATE [None]
  - PANCYTOPENIA [None]
  - PNEUMONIA [None]
